FAERS Safety Report 16863251 (Version 2)
Quarter: 2019Q4

REPORT INFORMATION
  Report Type: Spontaneous
  Country: US (occurrence: US)
  Receive Date: 20190927
  Receipt Date: 20191014
  Transmission Date: 20200122
  Serious: Yes (Other)
  Sender: FDA-Public Use
  Company Number: US-SA-2019SA263992

PATIENT
  Age: 57 Year
  Sex: Female

DRUGS (1)
  1. LANTUS SOLOSTAR [Suspect]
     Active Substance: INSULIN GLARGINE
     Indication: TYPE 2 DIABETES MELLITUS
     Dosage: 30 U, HS
     Route: 065

REACTIONS (5)
  - Device operational issue [Unknown]
  - Diabetes mellitus inadequate control [Unknown]
  - Device leakage [Unknown]
  - Blood glucose increased [Unknown]
  - Circumstance or information capable of leading to medication error [Unknown]
